FAERS Safety Report 15190896 (Version 2)
Quarter: 2018Q3

REPORT INFORMATION
  Report Type: Spontaneous
  Country: IT (occurrence: IT)
  Receive Date: 20180724
  Receipt Date: 20180821
  Transmission Date: 20181010
  Serious: Yes (Hospitalization)
  Sender: FDA-Public Use
  Company Number: IT-BAXTER-2018BAX019760

PATIENT
  Age: 11 Year
  Sex: Female
  Weight: 72 kg

DRUGS (19)
  1. ENDOXAN BAXTER [Suspect]
     Active Substance: CYCLOPHOSPHAMIDE
     Indication: ALLOGENIC BONE MARROW TRANSPLANTATION THERAPY
     Dosage: 3300 MG DAILY
     Route: 042
     Dates: start: 20171113, end: 20171114
  2. METHOTREXATE. [Suspect]
     Active Substance: METHOTREXATE
     Indication: ALLOGENIC BONE MARROW TRANSPLANTATION THERAPY
     Dosage: CYCLICAL
     Route: 042
     Dates: start: 20171119, end: 20171124
  3. FLUCONAZOLE. [Concomitant]
     Active Substance: FLUCONAZOLE
     Indication: PRODUCT USED FOR UNKNOWN INDICATION
     Dosage: 350 MG
     Route: 065
  4. THIOTEPA. [Suspect]
     Active Substance: THIOTEPA
     Indication: ALLOGENIC BONE MARROW TRANSPLANTATION THERAPY
     Route: 042
     Dates: start: 20171111, end: 20171112
  5. ACICLOVIR [Concomitant]
     Active Substance: ACYCLOVIR
     Dosage: 1800 MG
     Route: 042
     Dates: start: 20171114, end: 20171211
  6. LASIX [Concomitant]
     Active Substance: FUROSEMIDE
     Indication: PRODUCT USED FOR UNKNOWN INDICATION
     Dosage: VIAL
     Route: 042
     Dates: start: 20171110
  7. NYSTATIN. [Concomitant]
     Active Substance: NYSTATIN
     Indication: PRODUCT USED FOR UNKNOWN INDICATION
     Route: 065
  8. UROMITEXAN [Concomitant]
     Active Substance: MESNA
     Indication: PRODUCT USED FOR UNKNOWN INDICATION
     Dosage: 1100 MG
     Route: 042
     Dates: start: 20171115
  9. CIPROFLOXACIN. [Concomitant]
     Active Substance: CIPROFLOXACIN
     Indication: PRODUCT USED FOR UNKNOWN INDICATION
     Dosage: 1000 MG
     Route: 065
     Dates: start: 20171110, end: 20171115
  10. ENAPREN [Concomitant]
     Active Substance: ENALAPRIL MALEATE
     Indication: PRODUCT USED FOR UNKNOWN INDICATION
     Dosage: 5 MG
     Route: 065
  11. ANTRA [Concomitant]
     Active Substance: OMEPRAZOLE
     Indication: PRODUCT USED FOR UNKNOWN INDICATION
     Dosage: 40 MG
     Route: 042
  12. RANITIDINE HYDROCHLORIDE. [Concomitant]
     Active Substance: RANITIDINE HYDROCHLORIDE
     Indication: PRODUCT USED FOR UNKNOWN INDICATION
     Dosage: 150 MG
     Route: 042
  13. URSODEOXYCHOLIC ACID [Concomitant]
     Active Substance: URSODIOL
     Indication: PRODUCT USED FOR UNKNOWN INDICATION
     Dosage: 600 MG
     Route: 065
  14. URBASON [Concomitant]
     Active Substance: METHYLPREDNISOLONE
     Indication: PRODUCT USED FOR UNKNOWN INDICATION
     Dosage: 40 MG
     Route: 042
     Dates: start: 20171114
  15. ANTI?THYMOCYTE GLOBULIN (RABBIT) NOS [Suspect]
     Active Substance: LAPINE T-LYMPHOCYTE IMMUNE GLOBULIN
     Indication: PRODUCT USED FOR UNKNOWN INDICATION
     Dosage: 137.5 MG DAILY
     Route: 042
     Dates: start: 20171113, end: 20171115
  16. TACHIPIRIN [Concomitant]
     Indication: PRODUCT USED FOR UNKNOWN INDICATION
     Dosage: 1 G
     Route: 048
  17. ACICLOVIR [Concomitant]
     Active Substance: ACYCLOVIR
     Indication: PRODUCT USED FOR UNKNOWN INDICATION
     Dosage: 2400 MG
     Route: 048
     Dates: start: 20171110, end: 20171113
  18. TRIMETON [Concomitant]
     Active Substance: CHLORPHENIRAMINE MALEATE
     Indication: PRODUCT USED FOR UNKNOWN INDICATION
     Dosage: 2 DF
     Route: 065
  19. SANDIMMUN [Concomitant]
     Active Substance: CYCLOSPORINE
     Indication: PRODUCT USED FOR UNKNOWN INDICATION
     Dosage: 180 MG
     Route: 065
     Dates: start: 20171113

REACTIONS (3)
  - Pulmonary mass [Recovering/Resolving]
  - Cytomegalovirus infection [Recovering/Resolving]
  - Pyrexia [Recovering/Resolving]

NARRATIVE: CASE EVENT DATE: 20171204
